FAERS Safety Report 17653877 (Version 1)
Quarter: 2020Q2

REPORT INFORMATION
  Report Type: Spontaneous
  Country: RU (occurrence: RU)
  Receive Date: 20200409
  Receipt Date: 20200409
  Transmission Date: 20200713
  Serious: Yes (Other)
  Sender: FDA-Public Use
  Company Number: RU-ABBVIE-20P-251-3356664-00

PATIENT
  Sex: Male

DRUGS (1)
  1. FEVARIN [Suspect]
     Active Substance: FLUVOXAMINE MALEATE
     Indication: PANIC ATTACK
     Dosage: 50 MILLIGRAM
     Route: 048

REACTIONS (3)
  - Pruritus [Unknown]
  - Presyncope [Unknown]
  - Tremor [Unknown]
